FAERS Safety Report 19281766 (Version 1)
Quarter: 2021Q2

REPORT INFORMATION
  Report Type: Spontaneous
  Country: JP (occurrence: JP)
  Receive Date: 20210521
  Receipt Date: 20210521
  Transmission Date: 20210717
  Serious: Yes (Hospitalization)
  Sender: FDA-Public Use
  Company Number: JP-TEVA-2021-JP-1914810

PATIENT
  Age: 61 Year
  Sex: Female
  Weight: 47 kg

DRUGS (14)
  1. ROCURONIUM [Suspect]
     Active Substance: ROCURONIUM BROMIDE
     Indication: GENERAL ANAESTHESIA
     Dosage: INDUCTION ANAESTHESIA
     Route: 041
  2. PROPOFOL. [Suspect]
     Active Substance: PROPOFOL
     Indication: MAINTENANCE OF ANAESTHESIA
  3. REMIFENTANIL [Suspect]
     Active Substance: REMIFENTANIL
     Indication: MAINTENANCE OF ANAESTHESIA
  4. ALPROSTADIL ALFADEX [Suspect]
     Active Substance: ALPROSTADIL ALFADEX
     Indication: BLOOD PRESSURE MANAGEMENT
  5. NICARDIPINE [Suspect]
     Active Substance: NICARDIPINE
     Indication: HYPERTENSION
     Dosage: 1?0.5 MG/HR
     Route: 065
  6. PROPOFOL. [Suspect]
     Active Substance: PROPOFOL
     Indication: GENERAL ANAESTHESIA
     Dosage: (TARGET?CONTROLLED INFUSION: 4.5 MICROGRAM/ML)?INDUCTION ANAESTHESIA
     Route: 041
  7. ALPROSTADIL ALFADEX [Suspect]
     Active Substance: ALPROSTADIL ALFADEX
     Indication: HYPERTENSION
     Route: 065
  8. REMIFENTANIL [Suspect]
     Active Substance: REMIFENTANIL
     Indication: GENERAL ANAESTHESIA
     Dosage: INDUCTION ANAESTHESIA
     Route: 041
  9. ASPIRIN. [Concomitant]
     Active Substance: ASPIRIN
     Indication: CEREBROVASCULAR ACCIDENT
     Route: 065
  10. ALPROSTADIL ALFADEX [Suspect]
     Active Substance: ALPROSTADIL ALFADEX
     Indication: DRUG THERAPY
  11. PROPOFOL. [Suspect]
     Active Substance: PROPOFOL
     Indication: GENERAL ANAESTHESIA
     Dosage: (TARGET?CONTROLLED INFUSION 2.5 MICROGRAM/ML)?MAINTENANCE ANAESTHESIA
     Route: 041
  12. SUGAMMADEX [Suspect]
     Active Substance: SUGAMMADEX
     Indication: DRUG THERAPY
     Route: 065
  13. NICARDIPINE [Suspect]
     Active Substance: NICARDIPINE
     Indication: HYPERTENSION
     Route: 065
  14. DOXAPRAM [Concomitant]
     Active Substance: DOXAPRAM
     Indication: DRUG THERAPY
     Route: 065

REACTIONS (3)
  - Drug ineffective [Unknown]
  - Hypertension [Recovered/Resolved]
  - Hyperthermia malignant [Recovering/Resolving]
